FAERS Safety Report 13922745 (Version 1)
Quarter: 2017Q3

REPORT INFORMATION
  Report Type: Report from Study
  Country: US (occurrence: US)
  Receive Date: 20170830
  Receipt Date: 20170830
  Transmission Date: 20171127
  Serious: Yes (Hospitalization)
  Sender: FDA-Public Use
  Company Number: US-EXELIXIS-CABO-17010235

PATIENT
  Sex: Male

DRUGS (13)
  1. SUTENT [Concomitant]
     Active Substance: SUNITINIB MALATE
  2. DEXAMETHASONE. [Concomitant]
     Active Substance: DEXAMETHASONE
  3. GABAPENTIN. [Concomitant]
     Active Substance: GABAPENTIN
  4. NORCO [Concomitant]
     Active Substance: ACETAMINOPHEN\HYDROCODONE BITARTRATE
  5. PERCOCET [Concomitant]
     Active Substance: ACETAMINOPHEN\OXYCODONE HYDROCHLORIDE
  6. FUROSEMIDE. [Concomitant]
     Active Substance: FUROSEMIDE
  7. PROTONIX [Concomitant]
     Active Substance: PANTOPRAZOLE SODIUM
  8. XGEVA [Concomitant]
     Active Substance: DENOSUMAB
  9. OPDIVO [Concomitant]
     Active Substance: NIVOLUMAB
  10. OXYCODONE [Concomitant]
     Active Substance: OXYCODONE
  11. FENTANYL. [Concomitant]
     Active Substance: FENTANYL
  12. DILAUDID [Concomitant]
     Active Substance: HYDROMORPHONE HYDROCHLORIDE
  13. CABOMETYX [Suspect]
     Active Substance: CABOZANTINIB S-MALATE
     Indication: SOFT TISSUE SARCOMA
     Dosage: 60 MG, QD
     Route: 048
     Dates: start: 20170606

REACTIONS (2)
  - Decubitus ulcer [Unknown]
  - Off label use [Unknown]
